FAERS Safety Report 11691402 (Version 1)
Quarter: 2015Q4

REPORT INFORMATION
  Report Type: Spontaneous
  Country: US (occurrence: US)
  Receive Date: 20151102
  Receipt Date: 20151102
  Transmission Date: 20160304
  Serious: Yes (Life-Threatening, Hospitalization)
  Sender: FDA-Public Use
  Company Number: US-AQUA-2015AQU000049

PATIENT
  Sex: Female

DRUGS (1)
  1. ACTICLATE [Suspect]
     Active Substance: DOXYCYCLINE HYCLATE
     Indication: ACNE
     Dosage: 1 DF, ONCE OR TWICE A DAY
     Dates: start: 20150317, end: 20150806

REACTIONS (3)
  - Gastric ulcer haemorrhage [Recovered/Resolved]
  - Haemoglobin decreased [Recovered/Resolved]
  - Apparent death [Recovered/Resolved]

NARRATIVE: CASE EVENT DATE: 2015
